FAERS Safety Report 12139945 (Version 1)
Quarter: 2016Q1

REPORT INFORMATION
  Report Type: Spontaneous
  Country: US (occurrence: None)
  Receive Date: 20160302
  Receipt Date: 20160302
  Transmission Date: 20160526
  Serious: No
  Sender: FDA-Public Use
  Company Number: None

PATIENT
  Sex: Male

DRUGS (5)
  1. NOVOLOG [Suspect]
     Active Substance: INSULIN ASPART
  2. TOUJEO [Suspect]
     Active Substance: INSULIN GLARGINE
  3. METFORMIN [Suspect]
     Active Substance: METFORMIN HYDROCHLORIDE
  4. IRBESARTAN. [Suspect]
     Active Substance: IRBESARTAN
  5. JARDIANCE [Suspect]
     Active Substance: EMPAGLIFLOZIN

REACTIONS (7)
  - Blood glucose decreased [None]
  - Decreased appetite [None]
  - Memory impairment [None]
  - Weight decreased [None]
  - Energy increased [None]
  - Arthralgia [None]
  - Drug dose omission [None]
